FAERS Safety Report 8338422-9 (Version None)
Quarter: 2012Q1

REPORT INFORMATION
  Report Type: 
  Country: None (occurrence: None)
  Receive Date: 20120329
  Receipt Date: 20090507
  Transmission Date: 20120608
  Serious: Yes (Other)
  Sender: FDA-Public Use
  Company Number: PHEH2009US04595

PATIENT
  Age: 81 Year
  Sex: Female

DRUGS (1)
  1. EXELON [Suspect]
     Indication: DEMENTIA ALZHEIMER'S TYPE
     Dosage: 4.5 MG, QD, TRANSDERMAL
     Route: 062

REACTIONS (2)
  - FALL [None]
  - DIZZINESS [None]
